FAERS Safety Report 4408256-6 (Version None)
Quarter: 2004Q3

REPORT INFORMATION
  Report Type: 
  Country: None (occurrence: None)
  Receive Date: 20040726
  Receipt Date: 20040726
  Transmission Date: 20050211
  Serious: Yes (Other)
  Sender: FDA-Public Use
  Company Number: None

PATIENT
  Age: 57 Year
  Sex: Male
  Weight: 92.9874 kg

DRUGS (1)
  1. VANCOMYCIN [Suspect]
     Dosage: 1 GM Q24H INTRAVENOUS
     Route: 042
     Dates: start: 20040716, end: 20040716

REACTIONS (2)
  - FLUSHING [None]
  - SKIN WARM [None]
